FAERS Safety Report 5167170-1 (Version None)
Quarter: 2006Q4

REPORT INFORMATION
  Report Type: 
  Country: None (occurrence: None)
  Receive Date: 20061130
  Receipt Date: 20061120
  Transmission Date: 20070319
  Serious: Yes (Hospitalization)
  Sender: FDA-Public Use
  Company Number: GBWYE590220NOV06

PATIENT
  Age: 42 Year
  Sex: Female

DRUGS (1)
  1. TYGACIL [Suspect]
     Indication: ABDOMINAL SEPSIS
     Route: 042
     Dates: start: 20061101

REACTIONS (2)
  - ABDOMINAL PAIN [None]
  - MALABSORPTION [None]
